FAERS Safety Report 15616395 (Version 2)
Quarter: 2018Q4

REPORT INFORMATION
  Report Type: Spontaneous
  Country: US (occurrence: US)
  Receive Date: 20181114
  Receipt Date: 20181121
  Transmission Date: 20190205
  Serious: No
  Sender: FDA-Public Use
  Company Number: US-GLAXOSMITHKLINE-US2018199385

PATIENT
  Sex: Female

DRUGS (4)
  1. OMEPRAZOLE. [Suspect]
     Active Substance: OMEPRAZOLE
  2. PRAVASTATIN. [Suspect]
     Active Substance: PRAVASTATIN
  3. ADVAIR DISKUS [Suspect]
     Active Substance: FLUTICASONE PROPIONATE\SALMETEROL XINAFOATE
     Indication: DYSPNOEA
     Dosage: 1 PUFF(S), BID
     Route: 055
     Dates: start: 20181029, end: 20181030
  4. DOXYCYCLINE. [Suspect]
     Active Substance: DOXYCYCLINE

REACTIONS (3)
  - Ill-defined disorder [Unknown]
  - Peripheral swelling [Recovering/Resolving]
  - Respiration abnormal [Unknown]
